FAERS Safety Report 7656256-5 (Version None)
Quarter: 2011Q3

REPORT INFORMATION
  Report Type: 
  Country: None (occurrence: None)
  Receive Date: 20110804
  Receipt Date: 20110727
  Transmission Date: 20111222
  Serious: Yes (Hospitalization, Other)
  Sender: FDA-Public Use
  Company Number: US-ELI_LILLY_AND_COMPANY-US201007007859

PATIENT
  Sex: Male
  Weight: 113.38 kg

DRUGS (3)
  1. FUROSEMIDE [Concomitant]
     Indication: FLUID RETENTION
     Dosage: UNK
     Dates: start: 20060601
  2. BYETTA [Suspect]
     Dosage: UNK
     Dates: start: 20060101, end: 20090801
  3. GLIPIZIDE [Concomitant]
     Indication: DIABETES MELLITUS
     Dosage: UNK
     Dates: start: 20060601

REACTIONS (3)
  - RENAL FAILURE ACUTE [None]
  - RENAL FAILURE [None]
  - PANCREATITIS [None]
